FAERS Safety Report 5294606-8 (Version None)
Quarter: 2007Q2

REPORT INFORMATION
  Report Type: 
  Country: None (occurrence: None)
  Receive Date: 20070412
  Receipt Date: 20070406
  Transmission Date: 20071010
  Serious: Yes (Hospitalization)
  Sender: FDA-Public Use
  Company Number: US-GLAXOSMITHKLINE-A0646188A

PATIENT
  Age: 26 Year
  Sex: Male

DRUGS (2)
  1. DEXEDRINE [Suspect]
     Indication: ATTENTION DEFICIT/HYPERACTIVITY DISORDER
     Dosage: 10MG PER DAY
     Route: 048
     Dates: start: 19980101, end: 19990701
  2. NO CONCURRENT MEDICATION [Concomitant]

REACTIONS (2)
  - JOINT DISLOCATION [None]
  - UNEVALUABLE EVENT [None]
